FAERS Safety Report 4794441-0 (Version None)
Quarter: 2005Q4

REPORT INFORMATION
  Report Type: 
  Country: None (occurrence: None)
  Receive Date: 20051011
  Receipt Date: 20050920
  Transmission Date: 20060501
  Serious: Yes (Death, Hospitalization)
  Sender: FDA-Public Use
  Company Number: US-AMGEN-US151164

PATIENT
  Sex: Male

DRUGS (7)
  1. ARANESP [Suspect]
     Indication: ANAEMIA OF MALIGNANT DISEASE
     Route: 058
     Dates: start: 20040426, end: 20050824
  2. XELODA [Concomitant]
     Dates: start: 20050615, end: 20050831
  3. OXALIPLATIN [Concomitant]
     Dates: start: 20050615, end: 20050817
  4. AVASTIN [Concomitant]
     Dates: start: 20040426, end: 20050824
  5. CAMPTOSAR [Concomitant]
     Dates: start: 20030505, end: 20050601
  6. FLUOROURACIL [Concomitant]
     Dates: start: 20030505, end: 20050601
  7. LEUCOVORIN [Concomitant]
     Dates: start: 20030505, end: 20050601

REACTIONS (7)
  - ASCITES [None]
  - COLORECTAL CANCER [None]
  - GASTROINTESTINAL HAEMORRHAGE [None]
  - INTESTINAL MASS [None]
  - MALIGNANT NEOPLASM PROGRESSION [None]
  - OESOPHAGEAL HAEMORRHAGE [None]
  - OESOPHAGEAL ULCER [None]
